FAERS Safety Report 17755377 (Version 1)
Quarter: 2020Q2

REPORT INFORMATION
  Report Type: Spontaneous
  Country: US (occurrence: US)
  Receive Date: 20200506
  Receipt Date: 20200506
  Transmission Date: 20200714
  Serious: No
  Sender: FDA-Public Use
  Company Number: None

PATIENT
  Age: 75 Year
  Sex: Male
  Weight: 64.35 kg

DRUGS (10)
  1. CILOSTAZOL 100MG Q12 HOURS FOR PAD [Concomitant]
     Dates: start: 20200129
  2. GLIPIZIDE 2.5MG DAILY FOR DIABETES [Concomitant]
     Dates: start: 20200130
  3. AMLODIPINE 10MG DAILY FOR HYPERTENSION [Concomitant]
     Dates: start: 20200130
  4. MELATONIN 3MG HS FOR INSOMNIA [Concomitant]
     Dates: start: 20200311
  5. VALPROIC ACID 625MG Q12H FOR SEIZURE [Concomitant]
     Dates: start: 20200129
  6. METFORMIN 850MG BID FOR DIABETES [Concomitant]
     Dates: start: 20200129
  7. METOPROLOL TARTRATE 75MG Q12H FOR HYPERTENSION [Concomitant]
     Dates: start: 20200129
  8. SERTRALINE [Suspect]
     Active Substance: SERTRALINE HYDROCHLORIDE
     Indication: DEPRESSION
     Route: 048
     Dates: start: 20200110, end: 20200413
  9. TESTOSTERONE CYP 100MG IM Q2WEEK FOR HYPOGONADISM [Concomitant]
     Dates: start: 20200129
  10. SIMVASTATIN 20MG HS FOR HYPERLIPIDEMIA [Concomitant]
     Dates: start: 20200129

REACTIONS (1)
  - Bruxism [None]

NARRATIVE: CASE EVENT DATE: 20200404
